FAERS Safety Report 21122947 (Version 1)
Quarter: 2022Q3

REPORT INFORMATION
  Report Type: Spontaneous
  Country: US (occurrence: US)
  Receive Date: 20220724
  Receipt Date: 20220724
  Transmission Date: 20221027
  Serious: No
  Sender: FDA-Public Use
  Company Number: CID000000000026618

PATIENT
  Age: 61 Year
  Sex: Female

DRUGS (1)
  1. COPAXONE [Suspect]
     Active Substance: GLATIRAMER ACETATE
     Indication: Product used for unknown indication
     Route: 065

REACTIONS (7)
  - Hypoaesthesia [Unknown]
  - Headache [Unknown]
  - Dizziness [Unknown]
  - Balance disorder [Unknown]
  - Dysphagia [Unknown]
  - Gait disturbance [Unknown]
  - Drug ineffective [Unknown]
